FAERS Safety Report 7868404-2 (Version None)
Quarter: 2011Q4

REPORT INFORMATION
  Report Type: 
  Country: None (occurrence: None)
  Receive Date: 20111028
  Receipt Date: 20110103
  Transmission Date: 20120403
  Serious: No
  Sender: FDA-Public Use
  Company Number: US-AMGEN-USASP2011002518

PATIENT
  Age: 66 Year
  Sex: Female

DRUGS (1)
  1. ENBREL [Suspect]
     Indication: RHEUMATOID ARTHRITIS
     Dosage: UNK
     Dates: start: 20000405, end: 20101219

REACTIONS (6)
  - FATIGUE [None]
  - OROPHARYNGEAL PAIN [None]
  - NASAL CONGESTION [None]
  - PAIN IN EXTREMITY [None]
  - BACK PAIN [None]
  - NASOPHARYNGITIS [None]
